FAERS Safety Report 5558677-3 (Version None)
Quarter: 2007Q4

REPORT INFORMATION
  Report Type: 
  Country: None (occurrence: None)
  Receive Date: 20071214
  Receipt Date: 20071206
  Transmission Date: 20080405
  Serious: Yes (Hospitalization)
  Sender: FDA-Public Use
  Company Number: US-PFIZER INC-2007102806

PATIENT
  Age: 46 Year
  Sex: Male

DRUGS (5)
  1. IRINOTECAN HCL [Suspect]
     Indication: ANAPLASTIC ASTROCYTOMA
     Route: 042
     Dates: start: 20071019, end: 20071019
  2. IRINOTECAN HCL [Suspect]
     Route: 042
     Dates: start: 20071026, end: 20071026
  3. IRINOTECAN HCL [Suspect]
     Route: 042
     Dates: start: 20071102, end: 20071102
  4. IRINOTECAN HCL [Suspect]
     Route: 042
     Dates: start: 20071119, end: 20071119
  5. THALIDOMIDE [Suspect]
     Indication: ANAPLASTIC ASTROCYTOMA
     Dosage: DAILY DOSE:200MG
     Route: 048
     Dates: start: 20071019, end: 20071119

REACTIONS (2)
  - CONVULSION [None]
  - HYDROCEPHALUS [None]
